FAERS Safety Report 7888414-9 (Version None)
Quarter: 2011Q4

REPORT INFORMATION
  Report Type: 
  Country: None (occurrence: None)
  Receive Date: 20111103
  Receipt Date: 20111024
  Transmission Date: 20120403
  Serious: Yes (Death, Hospitalization)
  Sender: FDA-Public Use
  Company Number: GB-TEVA-263275ISR

PATIENT
  Sex: Male

DRUGS (14)
  1. PREDNISOLONE [Suspect]
     Dates: start: 20020926
  2. VALSARTAN [Concomitant]
     Dates: start: 20050705
  3. ACETAMINOPHEN [Concomitant]
     Dates: start: 20081229
  4. CYCLIZINE [Concomitant]
     Dates: start: 20090101
  5. AMOXICILLIN AND CLAVULANATE POTASSIUM [Concomitant]
     Route: 048
  6. BELATACEPT [Suspect]
     Indication: RENAL TRANSPLANT
     Route: 042
     Dates: start: 20020926
  7. ALBUTEROL SULFATE AUTOHALER [Concomitant]
     Dates: start: 20030428
  8. OXITROPIUM BROMIDE [Concomitant]
     Dates: start: 20030426
  9. ASPIRIN [Concomitant]
     Dates: start: 20110316
  10. GABAPENTIN [Concomitant]
     Dates: start: 20101124
  11. FERROUS SULFATE TAB [Concomitant]
     Dates: start: 20030703
  12. FLUTICASONE PROPIONATE [Concomitant]
     Dates: start: 20020926
  13. EZETIMIBE [Concomitant]
     Dates: start: 20071215
  14. MYCOPHENOLIC ACID [Suspect]
     Dates: start: 20020926

REACTIONS (6)
  - URINARY TRACT INFECTION [None]
  - UROSEPSIS [None]
  - CERVICAL MYELOPATHY [None]
  - SALIVARY GLAND MASS [None]
  - CARDIAC ARREST [None]
  - SPINAL CORD COMPRESSION [None]
